FAERS Safety Report 5117145-3 (Version None)
Quarter: 2006Q3

REPORT INFORMATION
  Report Type: 
  Country: None (occurrence: None)
  Receive Date: 20060927
  Receipt Date: 20060927
  Transmission Date: 20061208
  Serious: No
  Sender: FDA-Public Use
  Company Number: None

PATIENT
  Age: 55 Year
  Sex: Female
  Weight: 101 kg

DRUGS (1)
  1. OPTIMARK [Suspect]
     Indication: MYOCARDIAL INFARCTION
     Dosage: 32 ML IV
     Route: 042
     Dates: start: 20060619, end: 20060619

REACTIONS (4)
  - ARTHRALGIA [None]
  - NEPHROGENIC FIBROSING DERMOPATHY [None]
  - PAIN IN EXTREMITY [None]
  - POST PROCEDURAL COMPLICATION [None]
